FAERS Safety Report 7618305-X (Version None)
Quarter: 2011Q3

REPORT INFORMATION
  Report Type: 
  Country: None (occurrence: None)
  Receive Date: 20110718
  Receipt Date: 20110711
  Transmission Date: 20111222
  Serious: Yes (Death, Life-Threatening, Hospitalization)
  Sender: FDA-Public Use
  Company Number: NL-ROCHE-781129

PATIENT
  Sex: Female
  Weight: 77 kg

DRUGS (37)
  1. CARBOPLATIN [Suspect]
     Dosage: CUMULATIVE DOSE 632 MG, LAST DOSE PRIOR TO SAE ON 14 JUNE 2011. DELAYED.
     Route: 042
     Dates: start: 20110214
  2. OXYCODONE HCL [Concomitant]
     Indication: PAIN
     Dates: start: 20090401
  3. FLUTICASONE PROPIONATE [Concomitant]
     Dates: start: 20070101
  4. VENTOLIN HFA [Concomitant]
     Dosage: DRUG: VENTOLIN DA
     Dates: start: 20070101
  5. LISINOPRIL [Concomitant]
     Dates: start: 20110307, end: 20110402
  6. PREDNISONE [Concomitant]
     Dates: start: 20110630
  7. PACLITAXEL [Suspect]
     Indication: NON-SMALL CELL LUNG CANCER
     Dosage: DATE OF LAST DOSE PRIOR TO SAE: 14 JUNE 2011.DOSE:376 MG, DELAYED.
     Route: 042
     Dates: start: 20110214
  8. ACETAMINOPHEN [Concomitant]
     Indication: PAIN
     Dates: start: 20110216, end: 20110222
  9. SPIRIVA RESPIMAT [Concomitant]
     Dates: start: 20090101, end: 20110607
  10. LISINOPRIL [Concomitant]
     Dates: start: 20110413, end: 20110418
  11. GEMCITABINE [Concomitant]
     Dates: start: 20110403, end: 20110403
  12. ZINACEF [Concomitant]
     Indication: INFECTION
     Dosage: INDICATION REPORTED AS ELEVATED INFLAMMATION
     Dates: start: 20110403, end: 20110409
  13. FLUIMUCIL [Concomitant]
     Dates: start: 20110603
  14. CODEINE SULFATE [Concomitant]
     Indication: COUGH
     Dates: start: 20110307, end: 20110404
  15. PREDNISONE [Concomitant]
     Dates: start: 20110413, end: 20110512
  16. BEVACIZUMAB [Suspect]
     Indication: NON-SMALL CELL LUNG CANCER
     Dosage: DATE OF LAST DOSE PRIOR TO SAE:14 JUNE 2011.DOSE:1155 MG, DELAYED.
     Route: 042
     Dates: start: 20110214
  17. MIDAZOLAM HCL [Concomitant]
     Indication: SLEEP DISORDER
     Dates: start: 20110324, end: 20110403
  18. OXYCONTIN [Concomitant]
     Dates: start: 20110707
  19. CARBOPLATIN [Suspect]
     Indication: NON-SMALL CELL LUNG CANCER
     Dosage: DOSE:597 MG
     Route: 042
     Dates: start: 20110214
  20. ACETAMINOPHEN [Concomitant]
     Dates: start: 20110307
  21. OXYCODONE HCL [Concomitant]
     Dates: start: 20110711, end: 20110711
  22. CODEINE SULFATE [Concomitant]
     Dosage: FREQUENCY 3DD1
     Dates: start: 20110610
  23. CLARITHROMYCIN [Concomitant]
     Indication: COUGH
     Dosage: DRUG: KLACID 2DD1 5 DGN
     Dates: start: 20110304, end: 20110308
  24. LISINOPRIL [Concomitant]
     Dates: start: 20110214, end: 20110307
  25. TEMAZEPAM [Concomitant]
     Indication: SLEEP DISORDER
     Dates: start: 20110403, end: 20110415
  26. NITRAZEPAM [Concomitant]
     Dates: start: 20110425, end: 20110530
  27. COTRIM [Concomitant]
     Indication: SPUTUM DISCOLOURED
     Dosage: DRUG: COTROMAXOZOL.
     Dates: start: 20110413, end: 20110418
  28. COMBIVENT [Concomitant]
     Dates: start: 20110611
  29. ACETAMINOPHEN W/ CODEINE [Concomitant]
     Indication: PAIN
     Dates: start: 20090401, end: 20110308
  30. MIDAZOLAM HCL [Concomitant]
     Dates: start: 20110712
  31. CALCIUM CARBONATE [Concomitant]
     Indication: PROPHYLAXIS
     Dates: start: 20100301
  32. SERETIDE [Concomitant]
     Dates: start: 20070101, end: 20110609
  33. DEXTROMETHORPHAN HYDROBROMIDE [Concomitant]
     Indication: COUGH
     Dosage: DOSE: 1.5 MG/ML
     Dates: start: 20110404, end: 20110410
  34. SK-PREDNISONE [Concomitant]
     Indication: BRONCHITIS
     Dates: start: 20110512, end: 20110521
  35. PREDNISONE [Concomitant]
     Indication: SPUTUM DISCOLOURED
     Dates: start: 20110303, end: 20110317
  36. OXYCONTIN [Concomitant]
     Dates: start: 20110404
  37. DOXYCYCLINE [Concomitant]
     Indication: BRONCHITIS
     Dates: start: 20110512, end: 20110521

REACTIONS (6)
  - STRIDOR [None]
  - HAEMOPTYSIS [None]
  - ANAEMIA [None]
  - HAEMOGLOBIN DECREASED [None]
  - PNEUMONIA [None]
  - BLOOD SODIUM DECREASED [None]
